FAERS Safety Report 5167124-5 (Version None)
Quarter: 2006Q4

REPORT INFORMATION
  Report Type: 
  Country: None (occurrence: None)
  Receive Date: 20061207
  Receipt Date: 20061128
  Transmission Date: 20070319
  Serious: Yes (Death, Hospitalization)
  Sender: FDA-Public Use
  Company Number: FR-GLAXOSMITHKLINE-B0449472A

PATIENT
  Age: 62 Year
  Sex: Male
  Weight: 60 kg

DRUGS (1)
  1. ARIXTRA [Suspect]
     Indication: DEEP VEIN THROMBOSIS
     Dosage: 5MG TWICE PER DAY
     Route: 058
     Dates: start: 20060101

REACTIONS (4)
  - DEATH [None]
  - HAEMORRHAGE [None]
  - NERVE COMPRESSION [None]
  - OVERDOSE [None]
